FAERS Safety Report 14712592 (Version 1)
Quarter: 2018Q2

REPORT INFORMATION
  Report Type: Spontaneous
  Country: US (occurrence: US)
  Receive Date: 20180404
  Receipt Date: 20180404
  Transmission Date: 20180711
  Serious: Yes (Hospitalization, Other)
  Sender: FDA-Public Use
  Company Number: US-ASTRAZENECA-2018SE41539

PATIENT
  Age: 881 Month
  Sex: Female
  Weight: 81.6 kg

DRUGS (2)
  1. BEVESPI AEROSPHERE [Suspect]
     Active Substance: FORMOTEROL FUMARATE\GLYCOPYRROLATE
     Indication: CHRONIC OBSTRUCTIVE PULMONARY DISEASE
     Dosage: 9/4.8,  2 PUFFS TWICE A DAY
     Route: 055
     Dates: start: 2017, end: 20180325
  2. CARTIA XT [Concomitant]
     Active Substance: DILTIAZEM HYDROCHLORIDE
     Indication: HYPERTENSION
     Route: 048

REACTIONS (10)
  - Gastrointestinal obstruction [Unknown]
  - Swelling face [Unknown]
  - Rectal haemorrhage [Unknown]
  - Hypertension [Unknown]
  - Intentional product misuse [Unknown]
  - Pollakiuria [Unknown]
  - Drug dose omission [Unknown]
  - Pruritus [Recovered/Resolved]
  - Memory impairment [Unknown]
  - Rash [Unknown]

NARRATIVE: CASE EVENT DATE: 201803
